FAERS Safety Report 23904630 (Version 2)
Quarter: 2024Q2

REPORT INFORMATION
  Report Type: Spontaneous
  Country: US (occurrence: US)
  Receive Date: 20240527
  Receipt Date: 20240607
  Transmission Date: 20240717
  Serious: No
  Sender: FDA-Public Use
  Company Number: US-JNJFOC-20240485583

PATIENT
  Age: 5 Decade
  Sex: Female

DRUGS (4)
  1. TYLENOL [Suspect]
     Active Substance: ACETAMINOPHEN
     Indication: Pain in extremity
     Route: 065
     Dates: start: 2024
  2. TRAMADOL [Suspect]
     Active Substance: TRAMADOL\TRAMADOL HYDROCHLORIDE
     Indication: Pain in extremity
     Route: 065
     Dates: start: 2024
  3. UPTRAVI [Concomitant]
     Active Substance: SELEXIPAG
     Indication: Pulmonary arterial hypertension
     Dosage: MOST RECENT DOSE ON 23-APR-2024
     Route: 048
     Dates: start: 202401
  4. UPTRAVI [Concomitant]
     Active Substance: SELEXIPAG
     Dosage: DECREASING TO 200MCG BID TEMPORARILY, WHEN SHE FEELS BETTER SHE WILL INCREASE TO 400MCG
     Route: 048
     Dates: start: 2024

REACTIONS (1)
  - Drug ineffective [Unknown]

NARRATIVE: CASE EVENT DATE: 20240101
